FAERS Safety Report 15200148 (Version 3)
Quarter: 2018Q3

REPORT INFORMATION
  Report Type: Report from Study
  Country: IT (occurrence: IT)
  Receive Date: 20180726
  Receipt Date: 20180912
  Transmission Date: 20181010
  Serious: Yes (Other)
  Sender: FDA-Public Use
  Company Number: IT-TEVA-2018-IT-929873

PATIENT
  Age: 34 Year
  Sex: Male

DRUGS (1)
  1. ARIPIPRAZOLE. [Suspect]
     Active Substance: ARIPIPRAZOLE
     Indication: PSYCHOTIC DISORDER
     Dosage: 10 MILLIGRAM DAILY;
     Route: 048
     Dates: start: 20180610, end: 20180610

REACTIONS (4)
  - Extrapyramidal disorder [Unknown]
  - Dyskinesia [Unknown]
  - Bruxism [Unknown]
  - Dyspnoea [Unknown]

NARRATIVE: CASE EVENT DATE: 20180610
